FAERS Safety Report 13759930 (Version 2)
Quarter: 2017Q3

REPORT INFORMATION
  Report Type: Spontaneous
  Country: FR (occurrence: FR)
  Receive Date: 20170717
  Receipt Date: 20170718
  Transmission Date: 20171127
  Serious: Yes (Hospitalization)
  Sender: FDA-Public Use
  Company Number: FR-PFIZER INC-2017304044

PATIENT
  Age: 67 Year
  Sex: Male

DRUGS (3)
  1. ARACYTINE [Suspect]
     Active Substance: CYTARABINE
     Indication: ACUTE MYELOID LEUKAEMIA
     Dosage: 370 MG, 1X/DAY
     Route: 042
     Dates: start: 20170224, end: 20170303
  2. MYLOTARG [Suspect]
     Active Substance: GEMTUZUMAB OZOGAMICIN
     Indication: ACUTE MYELOID LEUKAEMIA
     Dosage: 5 MG, 3X/DAY
     Route: 042
     Dates: start: 20170224, end: 20170302
  3. CERUBIDINE [Suspect]
     Active Substance: DAUNORUBICIN HYDROCHLORIDE
     Indication: ACUTE MYELOID LEUKAEMIA
     Dosage: 110 MG, 2X/DAY
     Route: 042
     Dates: start: 20170224, end: 20170226

REACTIONS (1)
  - Enteritis leukopenic [Recovered/Resolved]

NARRATIVE: CASE EVENT DATE: 20170302
